FAERS Safety Report 6250322-7 (Version None)
Quarter: 2009Q2

REPORT INFORMATION
  Report Type: 
  Country: None (occurrence: None)
  Receive Date: 20090630
  Receipt Date: 20081104
  Transmission Date: 20091009
  Serious: Yes (Life-Threatening, Other)
  Sender: FDA-Public Use
  Company Number: PT-SANOFI-SYNTHELABO-D01200805002

PATIENT
  Sex: Female
  Weight: 59 kg

DRUGS (11)
  1. FLUOROURACIL [Suspect]
     Dosage: 592MG IV BOLUS D1+D2 FOLLOWED BY 5-FU 3552MG OVER 46-HOUR CONTINUOUS INFUSION.
     Route: 042
     Dates: start: 20080523, end: 20080523
  2. CIPRALEX [Concomitant]
  3. MIRTAZAPINE [Concomitant]
  4. PLACEBO [Suspect]
     Indication: NEUROLOGICAL SYMPTOM
     Route: 048
     Dates: start: 20071108, end: 20080628
  5. SIMVASTATIN [Concomitant]
     Dosage: 20 MG
     Dates: start: 20080619
  6. LEXOTAN [Concomitant]
     Dates: start: 20071109
  7. DEXAMETHASONE [Concomitant]
     Dosage: 10 MG
     Route: 042
     Dates: start: 20080523, end: 20080523
  8. DEXAMETHASONE [Concomitant]
     Dosage: 20 MG
     Route: 042
     Dates: start: 20080508, end: 20080508
  9. ONDANSETRON [Concomitant]
     Dates: start: 20080523, end: 20080523
  10. LEUCOVORIN CALCIUM [Suspect]
     Route: 042
     Dates: start: 20080523, end: 20080523
  11. OXALIPLATIN [Suspect]
     Route: 042
     Dates: start: 20080523, end: 20080523

REACTIONS (1)
  - MYOCARDIAL INFARCTION [None]
